FAERS Safety Report 7122256-7 (Version None)
Quarter: 2010Q4

REPORT INFORMATION
  Report Type: 
  Country: None (occurrence: None)
  Receive Date: 20101124
  Receipt Date: 20101118
  Transmission Date: 20110411
  Serious: Yes (Hospitalization)
  Sender: FDA-Public Use
  Company Number: US-CEPHALON-2010006021

PATIENT
  Sex: Female

DRUGS (1)
  1. AMRIX [Suspect]
     Indication: MUSCLE SPASMS

REACTIONS (3)
  - CONCUSSION [None]
  - DYSURIA [None]
  - ROAD TRAFFIC ACCIDENT [None]
